FAERS Safety Report 23939295 (Version 1)
Quarter: 2024Q2

REPORT INFORMATION
  Report Type: Spontaneous
  Country: NL (occurrence: NL)
  Receive Date: 20240605
  Receipt Date: 20240605
  Transmission Date: 20240716
  Serious: Yes (Other)
  Sender: FDA-Public Use
  Company Number: None

PATIENT
  Age: 56 Year
  Sex: Male
  Weight: 98.5 kg

DRUGS (1)
  1. RYBELSUS [Suspect]
     Active Substance: SEMAGLUTIDE
     Indication: Overweight
     Dosage: 14 MG, QD
     Dates: start: 20230818, end: 20240504

REACTIONS (3)
  - Pulmonary embolism [Recovering/Resolving]
  - Pneumonia [Recovering/Resolving]
  - Product use in unapproved indication [Unknown]
